FAERS Safety Report 24972330 (Version 1)
Quarter: 2025Q1

REPORT INFORMATION
  Report Type: Report from Study
  Country: US (occurrence: None)
  Receive Date: 20250215
  Receipt Date: 20250215
  Transmission Date: 20250409
  Serious: Yes (Hospitalization)
  Sender: ALEXION PHARMACEUTICALS
  Company Number: US-AstraZeneca-2013SE02971

PATIENT
  Age: 84 Year
  Weight: 53.07 kg

DRUGS (2)
  1. NEXIUM [Suspect]
     Active Substance: ESOMEPRAZOLE MAGNESIUM
     Indication: Gastrooesophageal reflux disease
  2. NEXIUM [Suspect]
     Active Substance: ESOMEPRAZOLE MAGNESIUM
     Dosage: 40 MILLIGRAM, QD

REACTIONS (7)
  - Fall [Unknown]
  - Ankle fracture [Unknown]
  - Illness [Unknown]
  - Influenza [Unknown]
  - Hypoacusis [Recovered/Resolved]
  - Dyspepsia [Unknown]
  - Intentional product misuse [Not Recovered/Not Resolved]
